FAERS Safety Report 5694125-0 (Version None)
Quarter: 2008Q2

REPORT INFORMATION
  Report Type: 
  Country: None (occurrence: None)
  Receive Date: 20080402
  Receipt Date: 20080320
  Transmission Date: 20081010
  Serious: Yes (Death)
  Sender: FDA-Public Use
  Company Number: 2008003055

PATIENT
  Age: 4 Month
  Sex: Female
  Weight: 9.0719 kg

DRUGS (1)
  1. INFANT'S PEDIACARE DECONGESTANT AND COUGH DROPS (PSEUDOEPHEDRINE, DEXT [Suspect]
     Dosage: ORAL
     Route: 048
     Dates: start: 20060501

REACTIONS (22)
  - CARDIAC ARREST [None]
  - CARDIOVASCULAR DISORDER [None]
  - DRUG LEVEL INCREASED [None]
  - DRUG TOXICITY [None]
  - ENDOCRINE DISORDER [None]
  - GASTROINTESTINAL INJURY [None]
  - HYPOTHERMIA [None]
  - INJURY [None]
  - LIVER DISORDER [None]
  - LIVER INJURY [None]
  - MUSCULOSKELETAL DISORDER [None]
  - NECK INJURY [None]
  - NERVOUS SYSTEM DISORDER [None]
  - OVERDOSE [None]
  - PULMONARY CONGESTION [None]
  - PULMONARY HAEMORRHAGE [None]
  - RESPIRATORY ARREST [None]
  - RETICULOENDOTHELIAL DYSFUNCTION [None]
  - SOFT TISSUE HAEMORRHAGE [None]
  - SPLEEN CONGESTION [None]
  - SUBARACHNOID HAEMORRHAGE [None]
  - UROGENITAL DISORDER [None]
